FAERS Safety Report 25947063 (Version 2)
Quarter: 2025Q4

REPORT INFORMATION
  Report Type: Spontaneous
  Country: US (occurrence: US)
  Receive Date: 20251022
  Receipt Date: 20251126
  Transmission Date: 20260118
  Serious: No
  Sender: MICRO LABS LIMITED
  Company Number: US-MICRO LABS LIMITED-ML2025-05366

PATIENT
  Age: 35 Year
  Sex: Male
  Weight: 77 kg

DRUGS (2)
  1. CROMOLYN SODIUM [Suspect]
     Active Substance: CROMOLYN SODIUM
     Indication: Mast cell activation syndrome
     Dosage: STRENGTH: 100 MG/5 ML
     Route: 048
     Dates: start: 2025, end: 2025
  2. CROMOLYN SODIUM [Suspect]
     Active Substance: CROMOLYN SODIUM
     Dosage: STRENGTH: 100 MG/5 ML; OPENING A NEW BOX OF CROMOLYN?SODIUM
     Route: 048
     Dates: start: 2025

REACTIONS (2)
  - Condition aggravated [Recovered/Resolved]
  - Product quality issue [Unknown]

NARRATIVE: CASE EVENT DATE: 20250101
